FAERS Safety Report 13510290 (Version 5)
Quarter: 2017Q4

REPORT INFORMATION
  Report Type: Spontaneous
  Country: HU (occurrence: HU)
  Receive Date: 20170503
  Receipt Date: 20171212
  Transmission Date: 20180320
  Serious: Yes (Death, Other)
  Sender: FDA-Public Use
  Company Number: HU-JNJFOC-20170426408

PATIENT

DRUGS (6)
  1. ASPIRIN W/CLOPIDOGREL [Interacting]
     Active Substance: ASPIRIN\CLOPIDOGREL
     Indication: PRODUCT USED FOR UNKNOWN INDICATION
     Route: 065
  2. AMIODARONE [Interacting]
     Active Substance: AMIODARONE
     Indication: PRODUCT USED FOR UNKNOWN INDICATION
     Route: 065
  3. IBRUTINIB [Suspect]
     Active Substance: IBRUTINIB
     Indication: CHRONIC LYMPHOCYTIC LEUKAEMIA
     Route: 048
  4. FLUCONAZOLE. [Interacting]
     Active Substance: FLUCONAZOLE
     Indication: PRODUCT USED FOR UNKNOWN INDICATION
     Route: 065
  5. ASPIRIN. [Interacting]
     Active Substance: ASPIRIN
     Indication: PRODUCT USED FOR UNKNOWN INDICATION
     Route: 065
  6. CLOPIDOGREL [Interacting]
     Active Substance: CLOPIDOGREL BISULFATE
     Indication: PRODUCT USED FOR UNKNOWN INDICATION
     Route: 065

REACTIONS (29)
  - Richter^s syndrome [Fatal]
  - Muscle haemorrhage [Unknown]
  - Cough [Unknown]
  - Haematochezia [Unknown]
  - Skin haemorrhage [Unknown]
  - Cryptococcosis [Unknown]
  - Acute myeloid leukaemia [Fatal]
  - Infection [Fatal]
  - Muscle abscess [Unknown]
  - Extravasation blood [Unknown]
  - Epistaxis [Unknown]
  - Myelodysplastic syndrome [Fatal]
  - Asthenia [Fatal]
  - Drug resistance [Fatal]
  - Haematoma [Unknown]
  - Myalgia [Unknown]
  - Diarrhoea [Unknown]
  - Candida infection [Unknown]
  - Neoplasm [Fatal]
  - Ventricular fibrillation [Unknown]
  - Pancreatitis [Unknown]
  - Chronic lymphocytic leukaemia [Unknown]
  - Arthralgia [Unknown]
  - Haematuria [Unknown]
  - Neutropenia [Unknown]
  - Autoimmune haemolytic anaemia [Unknown]
  - Atrial fibrillation [Unknown]
  - Drug interaction [Unknown]
  - Traumatic haemorrhage [Unknown]
